FAERS Safety Report 4380112-1 (Version None)
Quarter: 2004Q2

REPORT INFORMATION
  Report Type: 
  Country: None (occurrence: None)
  Receive Date: 20040616
  Receipt Date: 20040601
  Transmission Date: 20050107
  Serious: Yes (Death)
  Sender: FDA-Public Use
  Company Number: 2004S1001591

PATIENT
  Age: 54 Year
  Sex: Male

DRUGS (8)
  1. CLOZAPINE [Suspect]
     Indication: SCHIZOPHRENIA
     Dosage: 75MG QD, ORAL
     Route: 048
     Dates: start: 20030604
  2. CLOZAPINE [Suspect]
     Indication: SCHIZOPHRENIA
     Dosage: 300MG, QD, ORAL
     Route: 048
     Dates: start: 20030604
  3. ALBUTEROL [Concomitant]
  4. ALBUTEROL/IPRATROPIUM [Concomitant]
  5. FLUTICASONE/SALMETEROL [Concomitant]
  6. ZAFIRLUKAST [Concomitant]
  7. MONTELUKAST [Concomitant]
  8. VALPROIC ACID [Concomitant]

REACTIONS (1)
  - DEATH [None]
